FAERS Safety Report 11871700 (Version 1)
Quarter: 2015Q4

REPORT INFORMATION
  Report Type: Spontaneous
  Country: GB (occurrence: GB)
  Receive Date: 20151228
  Receipt Date: 20151228
  Transmission Date: 20160305
  Serious: Yes (Life-Threatening, Hospitalization, Disabling, Congenital Anomaly)
  Sender: FDA-Public Use
  Company Number: GB-TEVA-618756ACC

PATIENT

DRUGS (8)
  1. CYCLIZINE [Concomitant]
     Active Substance: CYCLIZINE
  2. FERROUS SULFATE [Concomitant]
     Active Substance: FERROUS SULFATE\FERROUS SULFATE, DRIED
  3. LORAZEPAM. [Concomitant]
     Active Substance: LORAZEPAM
  4. OMEPRAZOL [Concomitant]
     Active Substance: OMEPRAZOLE
  5. CANNABIS [Concomitant]
     Active Substance: CANNABIS SATIVA SUBSP. INDICA TOP
  6. MIRTAZAPINE. [Concomitant]
     Active Substance: MIRTAZAPINE
  7. OLANZAPINE. [Suspect]
     Active Substance: OLANZAPINE
     Indication: DEPRESSION
     Route: 064
  8. FLUOXETINE [Suspect]
     Active Substance: FLUOXETINE HYDROCHLORIDE
     Indication: DEPRESSION
     Route: 064

REACTIONS (3)
  - Gastroschisis [Not Recovered/Not Resolved]
  - Short-bowel syndrome [Unknown]
  - Congenital cleft hand [Not Recovered/Not Resolved]

NARRATIVE: CASE EVENT DATE: 20150815
